FAERS Safety Report 4817710-4 (Version None)
Quarter: 2005Q3

REPORT INFORMATION
  Report Type: 
  Country: None (occurrence: None)
  Receive Date: 20050929
  Receipt Date: 20050804
  Transmission Date: 20060218
  Serious: No
  Sender: FDA-Public Use
  Company Number: 05P-163-0307527-00

PATIENT
  Age: 66 Year
  Sex: Female
  Weight: 81.6475 kg

DRUGS (10)
  1. HUMIRA [Suspect]
     Indication: RHEUMATOID ARTHRITIS
     Dosage: 40 MG, 1 IN 2 WK, SUBCUTANEOUS
     Route: 058
     Dates: start: 20040601
  2. LEVOFLOXACIN [Suspect]
     Indication: NASOPHARYNGITIS
     Dosage: ONCE, PER ORAL
     Route: 048
     Dates: start: 20050621, end: 20050621
  3. METHOTREXATE [Concomitant]
  4. HYDROCHLOROTHIAZIDE [Concomitant]
  5. DIOVAN [Concomitant]
  6. LISINOPRIL [Concomitant]
  7. FOLIC ACID [Concomitant]
  8. PREDNISONE [Concomitant]
  9. ASPIRIN [Concomitant]
  10. IBUPROFEN [Concomitant]

REACTIONS (3)
  - BACK PAIN [None]
  - NASOPHARYNGITIS [None]
  - SWELLING FACE [None]
